FAERS Safety Report 8890094 (Version 1)
Quarter: 2012Q4

REPORT INFORMATION
  Report Type: Spontaneous
  Country: US (occurrence: None)
  Receive Date: 20121105
  Receipt Date: 20121105
  Transmission Date: 20130627
  Serious: Yes (Life-Threatening)
  Sender: FDA-Public Use
  Company Number: None

PATIENT
  Age: 66 Year
  Sex: Male
  Weight: 108.86 kg

DRUGS (1)
  1. PRADAXA [Suspect]
     Indication: ATRIAL FIBRILLATION
     Dosage: 150 mg bid inj
     Dates: start: 20120213, end: 20121016

REACTIONS (6)
  - Dyspnoea [None]
  - Haemoglobin decreased [None]
  - Impaired work ability [None]
  - Blood iron decreased [None]
  - Sleep attacks [None]
  - Pulmonary alveolar haemorrhage [None]
